FAERS Safety Report 25151938 (Version 1)
Quarter: 2025Q2

REPORT INFORMATION
  Report Type: Spontaneous
  Country: FR (occurrence: FR)
  Receive Date: 20250402
  Receipt Date: 20250402
  Transmission Date: 20250717
  Serious: Yes (Hospitalization)
  Sender: MYLAN
  Company Number: None

PATIENT
  Age: 59 Year
  Sex: Female
  Weight: 60.6 kg

DRUGS (52)
  1. METFORMIN [Suspect]
     Active Substance: METFORMIN HYDROCHLORIDE
     Indication: Type 2 diabetes mellitus
     Dosage: 2550 MILLIGRAM, QD
     Dates: end: 20241009
  2. METFORMIN [Suspect]
     Active Substance: METFORMIN HYDROCHLORIDE
     Dosage: 2550 MILLIGRAM, QD
     Route: 048
     Dates: end: 20241009
  3. METFORMIN [Suspect]
     Active Substance: METFORMIN HYDROCHLORIDE
     Dosage: 2550 MILLIGRAM, QD
     Route: 048
     Dates: end: 20241009
  4. METFORMIN [Suspect]
     Active Substance: METFORMIN HYDROCHLORIDE
     Dosage: 2550 MILLIGRAM, QD
     Dates: end: 20241009
  5. PERINDOPRIL [Suspect]
     Active Substance: PERINDOPRIL
     Indication: Cardiomyopathy
     Dosage: 2 MILLIGRAM, QD
     Dates: end: 20241009
  6. PERINDOPRIL [Suspect]
     Active Substance: PERINDOPRIL
     Dosage: 2 MILLIGRAM, QD
     Route: 048
     Dates: end: 20241009
  7. PERINDOPRIL [Suspect]
     Active Substance: PERINDOPRIL
     Dosage: 2 MILLIGRAM, QD
     Route: 048
     Dates: end: 20241009
  8. PERINDOPRIL [Suspect]
     Active Substance: PERINDOPRIL
     Dosage: 2 MILLIGRAM, QD
     Dates: end: 20241009
  9. FUROSEMIDE [Suspect]
     Active Substance: FUROSEMIDE
     Indication: Cardiomyopathy
     Dosage: 40 MILLIGRAM, QD
     Dates: end: 20241009
  10. FUROSEMIDE [Suspect]
     Active Substance: FUROSEMIDE
     Dosage: 40 MILLIGRAM, QD
     Route: 048
     Dates: end: 20241009
  11. FUROSEMIDE [Suspect]
     Active Substance: FUROSEMIDE
     Dosage: 40 MILLIGRAM, QD
     Route: 048
     Dates: end: 20241009
  12. FUROSEMIDE [Suspect]
     Active Substance: FUROSEMIDE
     Dosage: 40 MILLIGRAM, QD
     Dates: end: 20241009
  13. SITAGLIPTIN [Suspect]
     Active Substance: SITAGLIPTIN
     Indication: Type 2 diabetes mellitus
     Dosage: 100 MILLIGRAM, QD
     Dates: end: 20241009
  14. SITAGLIPTIN [Suspect]
     Active Substance: SITAGLIPTIN
     Dosage: 100 MILLIGRAM, QD
     Route: 048
     Dates: end: 20241009
  15. SITAGLIPTIN [Suspect]
     Active Substance: SITAGLIPTIN
     Dosage: 100 MILLIGRAM, QD
     Route: 048
     Dates: end: 20241009
  16. SITAGLIPTIN [Suspect]
     Active Substance: SITAGLIPTIN
     Dosage: 100 MILLIGRAM, QD
     Dates: end: 20241009
  17. TAHOR [Suspect]
     Active Substance: ATORVASTATIN CALCIUM
     Indication: Dyslipidaemia
     Dosage: 80 MILLIGRAM, QD
     Dates: end: 20241009
  18. TAHOR [Suspect]
     Active Substance: ATORVASTATIN CALCIUM
     Dosage: 80 MILLIGRAM, QD
     Route: 048
     Dates: end: 20241009
  19. TAHOR [Suspect]
     Active Substance: ATORVASTATIN CALCIUM
     Dosage: 80 MILLIGRAM, QD
     Route: 048
     Dates: end: 20241009
  20. TAHOR [Suspect]
     Active Substance: ATORVASTATIN CALCIUM
     Dosage: 80 MILLIGRAM, QD
     Dates: end: 20241009
  21. EZETIMIBE [Suspect]
     Active Substance: EZETIMIBE
     Indication: Dyslipidaemia
     Dosage: 10 MILLIGRAM, QD
     Dates: end: 20241009
  22. EZETIMIBE [Suspect]
     Active Substance: EZETIMIBE
     Dosage: 10 MILLIGRAM, QD
     Route: 048
     Dates: end: 20241009
  23. EZETIMIBE [Suspect]
     Active Substance: EZETIMIBE
     Dosage: 10 MILLIGRAM, QD
     Route: 048
     Dates: end: 20241009
  24. EZETIMIBE [Suspect]
     Active Substance: EZETIMIBE
     Dosage: 10 MILLIGRAM, QD
     Dates: end: 20241009
  25. OMNIPAQUE [Suspect]
     Active Substance: IOHEXOL
     Indication: Angiocardiogram
     Dates: start: 20240819, end: 20240819
  26. OMNIPAQUE [Suspect]
     Active Substance: IOHEXOL
     Route: 042
     Dates: start: 20240819, end: 20240819
  27. OMNIPAQUE [Suspect]
     Active Substance: IOHEXOL
     Route: 042
     Dates: start: 20240819, end: 20240819
  28. OMNIPAQUE [Suspect]
     Active Substance: IOHEXOL
     Dates: start: 20240819, end: 20240819
  29. ASPIRIN [Concomitant]
     Active Substance: ASPIRIN
  30. ASPIRIN [Concomitant]
     Active Substance: ASPIRIN
     Route: 065
  31. ASPIRIN [Concomitant]
     Active Substance: ASPIRIN
     Route: 065
  32. ASPIRIN [Concomitant]
     Active Substance: ASPIRIN
  33. TICAGRELOR [Concomitant]
     Active Substance: TICAGRELOR
  34. TICAGRELOR [Concomitant]
     Active Substance: TICAGRELOR
     Route: 065
  35. TICAGRELOR [Concomitant]
     Active Substance: TICAGRELOR
     Route: 065
  36. TICAGRELOR [Concomitant]
     Active Substance: TICAGRELOR
  37. LANSOPRAZOLE [Concomitant]
     Active Substance: LANSOPRAZOLE
  38. LANSOPRAZOLE [Concomitant]
     Active Substance: LANSOPRAZOLE
     Route: 065
  39. LANSOPRAZOLE [Concomitant]
     Active Substance: LANSOPRAZOLE
     Route: 065
  40. LANSOPRAZOLE [Concomitant]
     Active Substance: LANSOPRAZOLE
  41. LANTUS [Concomitant]
     Active Substance: INSULIN GLARGINE
  42. LANTUS [Concomitant]
     Active Substance: INSULIN GLARGINE
     Route: 065
  43. LANTUS [Concomitant]
     Active Substance: INSULIN GLARGINE
     Route: 065
  44. LANTUS [Concomitant]
     Active Substance: INSULIN GLARGINE
  45. ACEBUTOLOL HYDROCHLORIDE [Concomitant]
     Active Substance: ACEBUTOLOL HYDROCHLORIDE
  46. ACEBUTOLOL HYDROCHLORIDE [Concomitant]
     Active Substance: ACEBUTOLOL HYDROCHLORIDE
     Route: 065
  47. ACEBUTOLOL HYDROCHLORIDE [Concomitant]
     Active Substance: ACEBUTOLOL HYDROCHLORIDE
     Route: 065
  48. ACEBUTOLOL HYDROCHLORIDE [Concomitant]
     Active Substance: ACEBUTOLOL HYDROCHLORIDE
  49. POTASSIUM CHLORIDE [Concomitant]
     Active Substance: POTASSIUM CHLORIDE
  50. POTASSIUM CHLORIDE [Concomitant]
     Active Substance: POTASSIUM CHLORIDE
     Route: 065
  51. POTASSIUM CHLORIDE [Concomitant]
     Active Substance: POTASSIUM CHLORIDE
     Route: 065
  52. POTASSIUM CHLORIDE [Concomitant]
     Active Substance: POTASSIUM CHLORIDE

REACTIONS (1)
  - Acute kidney injury [Recovered/Resolved]

NARRATIVE: CASE EVENT DATE: 20241005
